FAERS Safety Report 10063800 (Version 1)
Quarter: 2014Q2

REPORT INFORMATION
  Report Type: Spontaneous
  Country: US (occurrence: US)
  Receive Date: 20140408
  Receipt Date: 20140408
  Transmission Date: 20141212
  Serious: Yes (Other)
  Sender: FDA-Public Use
  Company Number: US-JNJFOC-20140400155

PATIENT
  Sex: Female

DRUGS (2)
  1. VISINE UNSPECIFIED [Suspect]
     Route: 065
  2. VISINE UNSPECIFIED [Suspect]
     Indication: POISONING DELIBERATE
     Route: 065

REACTIONS (3)
  - Poisoning deliberate [Unknown]
  - Nervous system disorder [Unknown]
  - Liver injury [Unknown]
